FAERS Safety Report 16155166 (Version 23)
Quarter: 2022Q3

REPORT INFORMATION
  Report Type: Spontaneous
  Country: US (occurrence: US)
  Receive Date: 20190403
  Receipt Date: 20220817
  Transmission Date: 20221027
  Serious: Yes (Hospitalization, Other)
  Sender: FDA-Public Use
  Company Number: US-TAKEDA-2019TUS015567

PATIENT
  Age: 58 Year
  Sex: Female
  Weight: 62 kg

DRUGS (15)
  1. NINLARO [Suspect]
     Active Substance: IXAZOMIB CITRATE
     Indication: Plasma cell myeloma
     Dosage: 3 MILLIGRAM
     Route: 048
     Dates: start: 20180918
  2. NINLARO [Suspect]
     Active Substance: IXAZOMIB CITRATE
     Dosage: 4 MILLIGRAM
     Route: 048
     Dates: start: 20190221
  3. NINLARO [Suspect]
     Active Substance: IXAZOMIB CITRATE
     Dosage: 3 MILLIGRAM
     Route: 048
     Dates: start: 20190222
  4. REVLIMID [Suspect]
     Active Substance: LENALIDOMIDE
     Indication: Plasma cell myeloma
     Dosage: 25 MILLIGRAM, QD
     Route: 048
     Dates: start: 201803
  5. REVLIMID [Suspect]
     Active Substance: LENALIDOMIDE
     Dosage: 25 MILLIGRAM
     Route: 048
     Dates: start: 20190220
  6. REVLIMID [Suspect]
     Active Substance: LENALIDOMIDE
     Dosage: 25 UNK
     Route: 048
     Dates: start: 201908
  7. REVLIMID [Suspect]
     Active Substance: LENALIDOMIDE
     Dosage: 20 MILLIGRAM PER CUBIC METRE
     Route: 065
  8. REVLIMID [Suspect]
     Active Substance: LENALIDOMIDE
     Dosage: 10 MILLIGRAM, QD
     Route: 048
     Dates: start: 20210318
  9. FOLIC ACID [Concomitant]
     Active Substance: FOLIC ACID
     Dosage: UNK
  10. HYDREA [Concomitant]
     Active Substance: HYDROXYUREA
     Dosage: UNK
  11. HYDROXYUREA [Concomitant]
     Active Substance: HYDROXYUREA
     Dosage: UNK
  12. NEXIUM [Concomitant]
     Active Substance: ESOMEPRAZOLE MAGNESIUM
     Dosage: UNK
  13. PHENERGAN [Concomitant]
     Active Substance: PROMETHAZINE HYDROCHLORIDE
     Dosage: UNK
  14. URECHOLINE [Concomitant]
     Active Substance: BETHANECHOL CHLORIDE
     Dosage: UNK
  15. VALIUM [Concomitant]
     Active Substance: DIAZEPAM
     Dosage: UNK

REACTIONS (24)
  - Chills [Recovered/Resolved]
  - Depression [Recovering/Resolving]
  - Feeling of body temperature change [Recovered/Resolved]
  - Distractibility [Unknown]
  - Poor quality sleep [Unknown]
  - Malaise [Unknown]
  - Decreased activity [Unknown]
  - Taste disorder [Not Recovered/Not Resolved]
  - Anxiety [Recovering/Resolving]
  - Feeling abnormal [Recovered/Resolved]
  - Toxicity to various agents [Unknown]
  - Influenza like illness [Not Recovered/Not Resolved]
  - Tremor [Not Recovered/Not Resolved]
  - Cerebrovascular accident [Unknown]
  - Fatigue [Recovered/Resolved]
  - Diarrhoea [Not Recovered/Not Resolved]
  - Constipation [Not Recovered/Not Resolved]
  - Nausea [Unknown]
  - Peripheral swelling [Unknown]
  - Joint swelling [Unknown]
  - Vitamin B12 decreased [Unknown]
  - Onychomycosis [Unknown]
  - Oedema peripheral [Unknown]
  - Product dose omission issue [Unknown]

NARRATIVE: CASE EVENT DATE: 20190301
